FAERS Safety Report 9057035 (Version 1)
Quarter: 2013Q1

REPORT INFORMATION
  Report Type: Report from Study
  Country: US (occurrence: US)
  Receive Date: 20130131
  Receipt Date: 20130131
  Transmission Date: 20140127
  Serious: No
  Sender: FDA-Public Use
  Company Number: US-ABBOTT-12P-163-0992835-00

PATIENT
  Age: 33 Year
  Sex: Male

DRUGS (6)
  1. HUMIRA [Suspect]
     Dosage: LOADING DOSE
     Dates: start: 20120929
  2. METRONIDAZOLE [Concomitant]
     Indication: ABSCESS
  3. CIPROFLOXACIN [Concomitant]
     Indication: ABSCESS
  4. 6-MP [Concomitant]
     Indication: CROHN^S DISEASE
  5. NORCO [Concomitant]
     Indication: PAIN
     Dosage: 10/325, 1 TO 2 TABLETS EVERY 6 HOURS AS NEEDED
  6. PROVENTIL [Concomitant]
     Indication: ASTHMA
     Dosage: USES MAYBE 1 TO 5 TIMES PER YEAR

REACTIONS (2)
  - Rash pruritic [Recovered/Resolved]
  - Rash erythematous [Recovered/Resolved]
